FAERS Safety Report 10234159 (Version 1)
Quarter: 2014Q2

REPORT INFORMATION
  Report Type: Spontaneous
  Country: GB (occurrence: GB)
  Receive Date: 20140612
  Receipt Date: 20140612
  Transmission Date: 20141212
  Serious: Yes (Life-Threatening)
  Sender: FDA-Public Use
  Company Number: GB-GLAXOSMITHKLINE-B1001004A

PATIENT
  Age: 53 Year
  Sex: Male
  Weight: 85.8 kg

DRUGS (6)
  1. SERETIDE [Suspect]
     Indication: ASTHMA
     Dosage: 1000MCG PER DAY
     Route: 055
     Dates: end: 20140428
  2. RITONAVIR [Suspect]
     Indication: HIV INFECTION
     Dosage: 100MG PER DAY
     Route: 048
  3. ADCAL-D3 [Concomitant]
     Indication: OSTEOPOROSIS
     Dosage: 1IUAX PER DAY
     Route: 048
  4. TRUVADA [Concomitant]
     Indication: HIV INFECTION
     Dosage: 1IUAX PER DAY
     Route: 048
  5. ATAZANAVIR [Concomitant]
     Indication: HIV INFECTION
     Dosage: 300MG PER DAY
     Route: 048
  6. VARDENAFIL [Concomitant]
     Indication: ERECTILE DYSFUNCTION
     Dosage: 20MG PER DAY
     Route: 048

REACTIONS (3)
  - Drug interaction [Unknown]
  - Cushingoid [Recovering/Resolving]
  - Drug level increased [Recovering/Resolving]
